FAERS Safety Report 5837441-1 (Version None)
Quarter: 2008Q3

REPORT INFORMATION
  Report Type: 
  Country: None (occurrence: None)
  Receive Date: 20080807
  Receipt Date: 20080805
  Transmission Date: 20090109
  Serious: Yes (Hospitalization)
  Sender: FDA-Public Use
  Company Number: DE-BOEHRINGER INGELHEIM GMBH, GERMANY-2006-DE-00081DE

PATIENT
  Age: 75 Year
  Sex: Female

DRUGS (2)
  1. SPIRIVA [Suspect]
     Route: 048
  2. FORADIL [Suspect]
     Route: 048

REACTIONS (4)
  - CONFUSIONAL STATE [None]
  - RESPIRATORY FAILURE [None]
  - TACHYCARDIA [None]
  - TREMOR [None]
